FAERS Safety Report 18706361 (Version 1)
Quarter: 2021Q1

REPORT INFORMATION
  Report Type: Spontaneous
  Country: US (occurrence: US)
  Receive Date: 20210106
  Receipt Date: 20210106
  Transmission Date: 20210419
  Serious: Yes (Disabling, Other)
  Sender: FDA-Public Use
  Company Number: None

PATIENT
  Age: 28 Year
  Sex: Male
  Weight: 67.5 kg

DRUGS (10)
  1. PANTOPRAZOLE 40MG [Concomitant]
     Active Substance: PANTOPRAZOLE SODIUM
  2. NALTREXONE LOW DOSE [Concomitant]
  3. CITALOPRAM [Concomitant]
     Active Substance: CITALOPRAM HYDROBROMIDE
  4. LAMOTRIGINE 25MG [Concomitant]
     Active Substance: LAMOTRIGINE
  5. AMLODIPINE 2.5MG [Concomitant]
     Active Substance: AMLODIPINE BESYLATE
  6. NASACORT [Concomitant]
     Active Substance: TRIAMCINOLONE ACETONIDE
  7. DEXTROAMPHETAMINE 10 MG TABLET MALLENKRODT [Suspect]
     Active Substance: DEXTROAMPHETAMINE
     Indication: ATTENTION DEFICIT HYPERACTIVITY DISORDER
     Dosage: ?          QUANTITY:1 TABLET(S);?
     Route: 048
     Dates: start: 20210101, end: 20210105
  8. ALLEGRA 180MG [Concomitant]
  9. BONINE PRN [Concomitant]
  10. GAS X PRN [Concomitant]

REACTIONS (19)
  - Vomiting [None]
  - Disorganised speech [None]
  - Suspected product quality issue [None]
  - Product physical consistency issue [None]
  - Feeling abnormal [None]
  - Balance disorder [None]
  - Mental impairment [None]
  - Impaired ability to use machinery [None]
  - Nausea [None]
  - Product substitution issue [None]
  - Hyperhidrosis [None]
  - Hypoacusis [None]
  - Disturbance in attention [None]
  - Withdrawal syndrome [None]
  - Tunnel vision [None]
  - Aphasia [None]
  - Hypokinesia [None]
  - Headache [None]
  - Mood swings [None]

NARRATIVE: CASE EVENT DATE: 20210101
